FAERS Safety Report 7360033-2 (Version None)
Quarter: 2011Q1

REPORT INFORMATION
  Report Type: 
  Country: None (occurrence: None)
  Receive Date: 20110317
  Receipt Date: 20110114
  Transmission Date: 20110831
  Serious: Yes (Hospitalization)
  Sender: FDA-Public Use
  Company Number: TR-BAYER-2011-017481

PATIENT
  Age: 54 Year
  Sex: Male
  Weight: 75 kg

DRUGS (3)
  1. AVELOX [Suspect]
     Dosage: UNK
     Route: 048
     Dates: start: 20110113, end: 20110114
  2. BELOC ZOK [Concomitant]
     Indication: HYPERTENSION
     Dosage: UNK
     Route: 048
     Dates: start: 20070101
  3. BELOC ZOK [Concomitant]
     Indication: PALPITATIONS

REACTIONS (5)
  - DISORIENTATION [None]
  - HEART RATE INCREASED [None]
  - APHASIA [None]
  - ASTHENIA [None]
  - HYPOAESTHESIA [None]
